FAERS Safety Report 24019229 (Version 1)
Quarter: 2024Q2

REPORT INFORMATION
  Report Type: Spontaneous
  Country: US (occurrence: US)
  Receive Date: 20240627
  Receipt Date: 20240627
  Transmission Date: 20240716
  Serious: Yes (Disabling, Other)
  Sender: FDA-Public Use
  Company Number: US-PFIZER INC-PV202400083509

PATIENT
  Age: 53 Year
  Sex: Female
  Weight: 120 kg

DRUGS (7)
  1. IBRANCE [Suspect]
     Active Substance: PALBOCICLIB
     Indication: Invasive ductal breast carcinoma
     Dosage: TAKE ONE TABLET DAILY FOR 21 DAYS FOLLOWED BY 7 DAYS OFF
     Route: 048
     Dates: start: 202406
  2. IBRANCE [Suspect]
     Active Substance: PALBOCICLIB
     Indication: Hormone receptor positive breast cancer
  3. IBRANCE [Suspect]
     Active Substance: PALBOCICLIB
     Indication: Hormone receptor positive breast cancer
  4. IBRANCE [Suspect]
     Active Substance: PALBOCICLIB
     Indication: Human epidermal growth factor receptor negative
  5. IBRANCE [Suspect]
     Active Substance: PALBOCICLIB
     Indication: Breast cancer stage II
  6. GABAPENTIN [Concomitant]
     Active Substance: GABAPENTIN
     Indication: Pain
     Dosage: 600MG PO (PER ORAL) BID (TWICE A DAY)
     Route: 048
  7. FULVESTRANT [Concomitant]
     Active Substance: FULVESTRANT
     Dosage: UNK
     Dates: start: 202406

REACTIONS (6)
  - Second primary malignancy [Unknown]
  - Thyroid cancer [Unknown]
  - Autonomic neuropathy [Unknown]
  - Cancer pain [Unknown]
  - Diarrhoea [Unknown]
  - Neoplasm progression [Unknown]
